FAERS Safety Report 16557687 (Version 1)
Quarter: 2019Q3

REPORT INFORMATION
  Report Type: Spontaneous
  Country: JP (occurrence: JP)
  Receive Date: 20190711
  Receipt Date: 20190711
  Transmission Date: 20191004
  Serious: Yes (Other)
  Sender: FDA-Public Use
  Company Number: PHHY2019JP159724

PATIENT

DRUGS (1)
  1. METHYLPREDNISOLONE. [Suspect]
     Active Substance: METHYLPREDNISOLONE
     Indication: ALOPECIA AREATA
     Dosage: 500 MG, QD
     Route: 042

REACTIONS (3)
  - Incorrect route of product administration [Unknown]
  - Hydronephrosis [Unknown]
  - Urinary tract infection [Unknown]
